FAERS Safety Report 4679330-4 (Version None)
Quarter: 2005Q2

REPORT INFORMATION
  Report Type: 
  Country: None (occurrence: None)
  Receive Date: 20050602
  Receipt Date: 20050401
  Transmission Date: 20051028
  Serious: Yes (Death)
  Sender: FDA-Public Use
  Company Number: US-BRISTOL-MYERS SQUIBB COMPANY-12918595

PATIENT
  Age: 83 Year
  Sex: Female

DRUGS (1)
  1. MEGACE [Suspect]
     Indication: NEOPLASM MALIGNANT
     Route: 048
     Dates: start: 20050120, end: 20050201

REACTIONS (1)
  - MALIGNANT NEOPLASM PROGRESSION [None]
